FAERS Safety Report 8048593-X (Version None)
Quarter: 2012Q1

REPORT INFORMATION
  Report Type: 
  Country: None (occurrence: None)
  Receive Date: 20120117
  Receipt Date: 20120112
  Transmission Date: 20120608
  Serious: Yes (Other)
  Sender: FDA-Public Use
  Company Number: CA-PFIZER INC-2012009701

PATIENT
  Age: 67 Year
  Sex: Male

DRUGS (13)
  1. VARENICLINE TARTRATE [Suspect]
     Indication: SMOKING CESSATION THERAPY
     Dosage: UNK
     Dates: start: 20110101
  2. ONGLYZA [Concomitant]
     Dosage: UNK
  3. GLUCOBAY [Concomitant]
     Dosage: UNK
  4. SUPEUDOL [Concomitant]
     Dosage: UNK
  5. ATORVASTATIN [Concomitant]
     Dosage: UNK
  6. OXAZEPAM [Concomitant]
     Dosage: UNK
  7. DIAMICRON [Concomitant]
     Dosage: UNK
  8. NOVOLIN GE NPH [Concomitant]
     Dosage: UNK
  9. OXYCONTIN [Concomitant]
     Dosage: UNK
  10. ESOMEPRAZOLE [Concomitant]
     Dosage: UNK
  11. RAMIPRIL [Concomitant]
     Dosage: UNK
  12. CYMBALTA [Concomitant]
     Dosage: UNK
  13. GABAPENTIN [Concomitant]
     Dosage: UNK

REACTIONS (1)
  - HYPERGLYCAEMIA [None]
